FAERS Safety Report 8841414 (Version 1)
Quarter: 2012Q4

REPORT INFORMATION
  Report Type: 
  Country: US (occurrence: US)
  Receive Date: 20121015
  Receipt Date: 20121015
  Transmission Date: 20130627
  Serious: Yes (Hospitalization)
  Sender: FDA-Public Use
  Company Number: US-BAYER-2012-105283

PATIENT
  Age: 38 Year
  Sex: Female
  Weight: 121.9 kg

DRUGS (4)
  1. YAZ [Suspect]
  2. TYLENOL [Concomitant]
     Dosage: UNK
     Dates: start: 20101005
  3. ALBUTEROL [Concomitant]
     Dosage: UNK
     Dates: start: 20101005
  4. ANALGESICS [Concomitant]
     Indication: PAIN

REACTIONS (1)
  - Pulmonary artery thrombosis [None]
